FAERS Safety Report 4928622-X (Version None)
Quarter: 2006Q1

REPORT INFORMATION
  Report Type: 
  Country: None (occurrence: None)
  Receive Date: 20060227
  Receipt Date: 20060227
  Transmission Date: 20060701
  Serious: No
  Sender: FDA-Public Use
  Company Number: None

PATIENT
  Age: 25 Year
  Sex: Male

DRUGS (4)
  1. IBUPROFEN [Suspect]
     Indication: MUSCULOSKELETAL CHEST PAIN
     Dosage: ORAL
     Route: 048
     Dates: start: 20060213, end: 20060214
  2. IBUPROFEN [Suspect]
     Indication: SKELETAL INJURY
     Dosage: ORAL
     Route: 048
     Dates: start: 20060213, end: 20060214
  3. BENADRYL [Concomitant]
  4. SOLU-MEDROL [Concomitant]

REACTIONS (4)
  - ANGIONEUROTIC OEDEMA [None]
  - ERYTHEMA [None]
  - SWELLING FACE [None]
  - URTICARIA [None]
